FAERS Safety Report 19686165 (Version 1)
Quarter: 2021Q3

REPORT INFORMATION
  Report Type: Spontaneous
  Country: US (occurrence: US)
  Receive Date: 20210811
  Receipt Date: 20210811
  Transmission Date: 20211014
  Serious: No
  Sender: FDA-Public Use
  Company Number: US-PERRIGO-21US005323

PATIENT
  Age: 50 Year
  Sex: Female
  Weight: 73.02 kg

DRUGS (5)
  1. CETIRIZINE HYDROCHLORIDE. [Concomitant]
     Active Substance: CETIRIZINE HYDROCHLORIDE
     Indication: SEASONAL ALLERGY
     Dosage: UNK
     Route: 048
  2. DIPHENHYDRAMINE HCL [Concomitant]
     Active Substance: DIPHENHYDRAMINE HYDROCHLORIDE
     Indication: RASH
     Dosage: 25 MG, NIGHTLY
     Route: 048
     Dates: start: 20210312
  3. LORATADINE. [Suspect]
     Active Substance: LORATADINE
     Indication: RASH
     Dosage: 20 MG, QD
     Route: 048
     Dates: start: 20210312
  4. HYDROCORTISONE. [Concomitant]
     Active Substance: HYDROCORTISONE
     Indication: RASH
     Dosage: UNKNOWN, UNKNOWN
     Route: 061
     Dates: start: 20210412
  5. FAMOTIDINE. [Suspect]
     Active Substance: FAMOTIDINE
     Indication: RASH
     Dosage: 20 MG, BID
     Route: 048
     Dates: start: 20210412

REACTIONS (1)
  - Drug ineffective for unapproved indication [Unknown]

NARRATIVE: CASE EVENT DATE: 20210312
